FAERS Safety Report 10881388 (Version 1)
Quarter: 2015Q1

REPORT INFORMATION
  Report Type: Spontaneous
  Country: GB (occurrence: GB)
  Receive Date: 20150303
  Receipt Date: 20150303
  Transmission Date: 20150721
  Serious: Yes (Hospitalization)
  Sender: FDA-Public Use
  Company Number: PHFR2014GB000895

PATIENT
  Age: 28 Year
  Sex: Female

DRUGS (4)
  1. CLOZARIL [Suspect]
     Active Substance: CLOZAPINE
     Dosage: 250 MG, UNK
     Dates: start: 20140124
  2. AMPHETAMINE [Suspect]
     Active Substance: AMPHETAMINE
  3. CLOZARIL [Suspect]
     Active Substance: CLOZAPINE
     Dosage: 275 MG, QD
     Route: 065
     Dates: start: 20150221
  4. CLOZARIL [Suspect]
     Active Substance: CLOZAPINE
     Indication: SCHIZOPHRENIA
     Dosage: 250 MG, UNK
     Route: 048
     Dates: start: 20131104

REACTIONS (6)
  - Neutrophil count increased [Not Recovered/Not Resolved]
  - Tachycardia [Recovering/Resolving]
  - Antipsychotic drug level below therapeutic [Unknown]
  - White blood cell count increased [Not Recovered/Not Resolved]
  - Substance abuse [Recovering/Resolving]
  - Mental impairment [Recovering/Resolving]

NARRATIVE: CASE EVENT DATE: 20140114
